FAERS Safety Report 21483494 (Version 10)
Quarter: 2023Q2

REPORT INFORMATION
  Report Type: Report from Study
  Country: US (occurrence: US)
  Receive Date: 20221020
  Receipt Date: 20230627
  Transmission Date: 20230722
  Serious: Yes (Other)
  Sender: FDA-Public Use
  Company Number: US-002147023-NVSC2022US235767

PATIENT
  Sex: Female
  Weight: 240 kg

DRUGS (3)
  1. COSENTYX [Suspect]
     Active Substance: SECUKINUMAB
     Indication: Psoriasis
     Dosage: UNK
     Route: 065
  2. COSENTYX [Suspect]
     Active Substance: SECUKINUMAB
     Dosage: UNK
     Route: 065
  3. COSENTYX [Suspect]
     Active Substance: SECUKINUMAB
     Dosage: 300 MG
     Route: 058
     Dates: end: 20230323

REACTIONS (5)
  - Hepatitis B [Unknown]
  - Injection site pain [Recovered/Resolved]
  - White blood cell count decreased [Unknown]
  - Hepatic enzyme increased [Unknown]
  - Psoriasis [Unknown]
